FAERS Safety Report 4393673-3 (Version None)
Quarter: 2004Q3

REPORT INFORMATION
  Report Type: 
  Country: None (occurrence: None)
  Receive Date: 20040709
  Receipt Date: 20040709
  Transmission Date: 20050211
  Serious: Yes (Other)
  Sender: FDA-Public Use
  Company Number: None

PATIENT

DRUGS (1)
  1. DURAGESIC [Suspect]

REACTIONS (8)
  - DRUG INEFFECTIVE [None]
  - DRUG WITHDRAWAL SYNDROME [None]
  - FAMILY STRESS [None]
  - HYPERHIDROSIS [None]
  - JAW DISORDER [None]
  - JOINT LOCK [None]
  - SLEEP DISORDER [None]
  - STOMACH DISCOMFORT [None]
